FAERS Safety Report 6453180-0 (Version None)
Quarter: 2009Q4

REPORT INFORMATION
  Report Type: 
  Country: None (occurrence: None)
  Receive Date: 20091124
  Receipt Date: 20091118
  Transmission Date: 20100525
  Serious: Yes (Other)
  Sender: FDA-Public Use
  Company Number: JP-SANOFI-AVENTIS-2009SA002787

PATIENT
  Sex: Female

DRUGS (1)
  1. LEFLUNOMIDE [Suspect]
     Indication: RHEUMATOID ARTHRITIS
     Route: 048
     Dates: start: 20070401, end: 20090101

REACTIONS (3)
  - COLITIS ULCERATIVE [None]
  - DIARRHOEA [None]
  - HAEMATOCHEZIA [None]
